FAERS Safety Report 8018500-4 (Version None)
Quarter: 2012Q1

REPORT INFORMATION
  Report Type: 
  Country: None (occurrence: None)
  Receive Date: 20120103
  Receipt Date: 20111229
  Transmission Date: 20120608
  Serious: Yes (Hospitalization)
  Sender: FDA-Public Use
  Company Number: US-BAYER-2011-124590

PATIENT
  Age: 49 Year
  Sex: Male

DRUGS (3)
  1. NEXAVAR [Suspect]
     Indication: HEPATIC NEOPLASM MALIGNANT
     Dosage: 400 MG, BID
     Route: 048
     Dates: start: 20111202, end: 20111201
  2. NEXAVAR [Suspect]
     Dosage: 200 MG, BID
     Route: 048
     Dates: start: 20111201
  3. DIURETICS [Concomitant]

REACTIONS (4)
  - ASCITES [None]
  - MUSCLE SPASMS [None]
  - DYSPNOEA [None]
  - BLOOD PRESSURE INCREASED [None]
